FAERS Safety Report 5178001-8 (Version None)
Quarter: 2006Q4

REPORT INFORMATION
  Report Type: 
  Country: None (occurrence: None)
  Receive Date: 20061208
  Receipt Date: 20061128
  Transmission Date: 20070319
  Serious: Yes (Other)
  Sender: FDA-Public Use
  Company Number: 2006SP007458

PATIENT
  Age: 19 Year
  Sex: Male

DRUGS (4)
  1. NOXAFIL [Suspect]
     Indication: PROPHYLAXIS
     Dates: start: 20060901
  2. VORICONAZOLE [Concomitant]
  3. STEROIDS [Concomitant]
  4. AMBISOME [Concomitant]

REACTIONS (4)
  - ASPERGILLOSIS [None]
  - CATHETER SITE INFECTION [None]
  - RENAL FAILURE ACUTE [None]
  - STAPHYLOCOCCAL INFECTION [None]
